FAERS Safety Report 9299233 (Version 2)
Quarter: 2013Q2

REPORT INFORMATION
  Report Type: Spontaneous
  Country: IT (occurrence: IT)
  Receive Date: 20130520
  Receipt Date: 20130627
  Transmission Date: 20140414
  Serious: Yes (Hospitalization, Other)
  Sender: FDA-Public Use
  Company Number: IT-ELI_LILLY_AND_COMPANY-IT201305003708

PATIENT
  Age: 37 Year
  Sex: Male

DRUGS (3)
  1. ZYPREXA [Suspect]
     Indication: PSYCHOTIC DISORDER
     Dosage: 10 MG, QD
     Route: 048
     Dates: start: 20110101, end: 20130502
  2. AZATIOPRIN [Concomitant]
     Indication: MULTIPLE SCLEROSIS
     Dosage: 200 MG, QD
     Dates: start: 20110101, end: 20130502
  3. HALDOL [Concomitant]
     Indication: MAJOR DEPRESSION
     Dosage: 1 DF, MONTHLY (1/M)
     Route: 030
     Dates: start: 20110101, end: 20130502

REACTIONS (2)
  - Pancytopenia [Recovered/Resolved]
  - Jaundice [Recovered/Resolved]
